FAERS Safety Report 6286155-5 (Version None)
Quarter: 2009Q3

REPORT INFORMATION
  Report Type: 
  Country: None (occurrence: None)
  Receive Date: 20090728
  Receipt Date: 20090727
  Transmission Date: 20100115
  Serious: Yes (Life-Threatening, Hospitalization)
  Sender: FDA-Public Use
  Company Number: IT-ROXANE LABORATORIES, INC.-2009-DE-00235GD

PATIENT
  Age: 72 Year
  Sex: Female

DRUGS (4)
  1. SERTRALINE [Suspect]
  2. SOTALOL HYDROCHLORIDE [Suspect]
  3. DIGOXIN [Suspect]
  4. ACENOCOUMARINE [Suspect]

REACTIONS (5)
  - BRADYCARDIA [None]
  - ELECTROCARDIOGRAM QT PROLONGED [None]
  - EXTRASYSTOLES [None]
  - TORSADE DE POINTES [None]
  - VENTRICULAR TACHYCARDIA [None]
